FAERS Safety Report 10207004 (Version 1)
Quarter: 2014Q2

REPORT INFORMATION
  Report Type: Spontaneous
  Country: US (occurrence: None)
  Receive Date: 20140528
  Receipt Date: 20140528
  Transmission Date: 20141212
  Serious: Yes (Other)
  Sender: FDA-Public Use
  Company Number: None

PATIENT
  Sex: Male
  Weight: 94.35 kg

DRUGS (16)
  1. GLIMEPIRIDE [Concomitant]
  2. FINASTERIDE [Concomitant]
  3. ASPIRIN [Concomitant]
  4. MULTIVITAMIN [Concomitant]
  5. PEPCID COMPLETE/MAALOX PRN [Concomitant]
  6. LANTUS 50U [Concomitant]
  7. HUMALIN [Concomitant]
  8. HYDROCORTISONE CR. [Concomitant]
  9. PEPCID AC [Concomitant]
  10. MOVEFREE UTRA(SCHIFF) [Concomitant]
  11. MYRBETRIQ [Suspect]
     Indication: HYPERTONIC BLADDER
     Route: 048
     Dates: start: 20140408, end: 20140415
  12. ANALAPRIL [Concomitant]
  13. METOPROLOL [Concomitant]
  14. HYDROCHLOROTHIAZIDE [Concomitant]
  15. NEXIUM [Concomitant]
  16. LIPITOR [Concomitant]

REACTIONS (1)
  - Blood pressure systolic increased [None]
